FAERS Safety Report 22182723 (Version 2)
Quarter: 2023Q2

REPORT INFORMATION
  Report Type: Spontaneous
  Country: US (occurrence: None)
  Receive Date: 20230406
  Receipt Date: 20230606
  Transmission Date: 20230721
  Serious: Yes (Other)
  Sender: FDA-Public Use
  Company Number: 2023A075225

PATIENT
  Sex: Female
  Weight: 71.7 kg

DRUGS (1)
  1. SYMLIN [Suspect]
     Active Substance: PRAMLINTIDE ACETATE
     Indication: Type 1 diabetes mellitus
     Dosage: 60MCG BEFORE MEALS THREE TIMES A DAY
     Route: 058

REACTIONS (5)
  - Blood glucose increased [Recovered/Resolved]
  - Device delivery system issue [Recovered/Resolved]
  - Device use issue [Recovered/Resolved]
  - Incorrect dose administered by device [Recovered/Resolved]
  - Device issue [Unknown]
